FAERS Safety Report 7191852-3 (Version None)
Quarter: 2010Q4

REPORT INFORMATION
  Report Type: 
  Country: None (occurrence: None)
  Receive Date: 20101223
  Receipt Date: 20101220
  Transmission Date: 20110411
  Serious: Yes (Other)
  Sender: FDA-Public Use
  Company Number: JP-PFIZER INC-2010176133

PATIENT
  Age: 14 Year
  Sex: Male

DRUGS (1)
  1. GENOTROPIN TC [Suspect]
     Dosage: 0.8 MG, 1X/DAY
     Route: 058

REACTIONS (1)
  - GASTROENTERITIS NOROVIRUS [None]
